FAERS Safety Report 24874572 (Version 1)
Quarter: 2025Q1

REPORT INFORMATION
  Report Type: Report from Study
  Country: US (occurrence: US)
  Receive Date: 20250122
  Receipt Date: 20250122
  Transmission Date: 20250409
  Serious: Yes (Other)
  Sender: ALEXION PHARMACEUTICALS
  Company Number: US-ALXN-202501USA013317US

PATIENT

DRUGS (1)
  1. STRENSIQ [Suspect]
     Active Substance: ASFOTASE ALFA
     Route: 065

REACTIONS (3)
  - Irritability [Not Recovered/Not Resolved]
  - Apathy [Not Recovered/Not Resolved]
  - Social avoidant behaviour [Not Recovered/Not Resolved]
